FAERS Safety Report 5669305-0 (Version None)
Quarter: 2008Q1

REPORT INFORMATION
  Report Type: 
  Country: None (occurrence: None)
  Receive Date: 20080317
  Receipt Date: 20080310
  Transmission Date: 20080703
  Serious: Yes (Hospitalization, Other)
  Sender: FDA-Public Use
  Company Number: PHHY2008BR02573

PATIENT
  Age: 43 Year
  Sex: Female
  Weight: 66 kg

DRUGS (2)
  1. EUTHROID-1 [Concomitant]
     Indication: THYROID DISORDER
     Dosage: 1 TABLET/DAY
     Route: 048
  2. CODATEN [Suspect]
     Indication: INTERVERTEBRAL DISC PROTRUSION
     Dosage: 50 MG/TID
     Route: 048
     Dates: start: 20080228, end: 20080229

REACTIONS (6)
  - ABDOMINAL PAIN [None]
  - DIARRHOEA [None]
  - HYPERSENSITIVITY [None]
  - STOMACH DISCOMFORT [None]
  - SURGERY [None]
  - VOMITING [None]
